FAERS Safety Report 4931076-0 (Version None)
Quarter: 2006Q1

REPORT INFORMATION
  Report Type: 
  Country: None (occurrence: None)
  Receive Date: 20060302
  Receipt Date: 20050412
  Transmission Date: 20060701
  Serious: Yes (Hospitalization)
  Sender: FDA-Public Use
  Company Number: US-MERCK-0504USA02158

PATIENT
  Age: 89 Year
  Sex: Male
  Weight: 64 kg

DRUGS (6)
  1. VIOXX [Suspect]
     Indication: ARTHRITIS
     Route: 048
     Dates: start: 20010901, end: 20030101
  2. TERAZOSIN HYDROCHLORIDE [Concomitant]
     Route: 048
  3. PRILOSEC [Concomitant]
     Route: 048
  4. FUROSEMIDE [Concomitant]
     Route: 048
  5. DIGOXIN [Concomitant]
     Route: 048
  6. WARFARIN [Concomitant]
     Route: 048

REACTIONS (2)
  - CHEST PAIN [None]
  - ISCHAEMIC STROKE [None]
